FAERS Safety Report 5309523-4 (Version None)
Quarter: 2007Q2

REPORT INFORMATION
  Report Type: 
  Country: None (occurrence: None)
  Receive Date: 20070427
  Receipt Date: 20060613
  Transmission Date: 20071010
  Serious: No
  Sender: FDA-Public Use
  Company Number: US-GLAXOSMITHKLINE-A0606822A

PATIENT
  Age: 17 Year
  Sex: Male

DRUGS (12)
  1. DEXEDRINE [Suspect]
     Indication: ATTENTION DEFICIT/HYPERACTIVITY DISORDER
     Dosage: 120MG PER DAY
     Route: 048
     Dates: start: 20060201, end: 20060201
  2. DEXEDRINE [Suspect]
     Dosage: 2CAP PER DAY
     Route: 048
     Dates: start: 19990101, end: 19990101
  3. DEXEDRINE [Suspect]
     Route: 048
  4. TEGRETOL [Concomitant]
  5. DEPAKOTE [Concomitant]
  6. CATAPRES [Concomitant]
  7. ABILIFY [Concomitant]
  8. SEROQUEL [Concomitant]
  9. PREVACID [Concomitant]
  10. NASONEX SPRAY [Concomitant]
  11. UNKNOWN MEDICATION [Concomitant]
  12. MIRALAX [Concomitant]

REACTIONS (1)
  - DRUG INEFFECTIVE [None]
